FAERS Safety Report 4790500-7 (Version None)
Quarter: 2005Q3

REPORT INFORMATION
  Report Type: 
  Country: None (occurrence: None)
  Receive Date: 20050914
  Receipt Date: 20041230
  Transmission Date: 20060218
  Serious: Yes (Hospitalization, Other)
  Sender: FDA-Public Use
  Company Number: 163-20785-04120651

PATIENT
  Age: 53 Year
  Sex: Male

DRUGS (34)
  1. THALOMID [Suspect]
     Indication: MULTIPLE MYELOMA
     Dosage: SEE IMAGE, ORAL
     Route: 048
     Dates: start: 20041220, end: 20050125
  2. THALOMID [Suspect]
     Indication: MULTIPLE MYELOMA
     Dosage: SEE IMAGE, ORAL
     Route: 048
     Dates: start: 20040927
  3. DEXAMETHASONE [Suspect]
     Indication: MULTIPLE MYELOMA
     Dosage: 20MG, DAYS 1-4 Q21 DAYS
     Dates: start: 20041220, end: 20041224
  4. VELCADE [Suspect]
     Indication: MULTIPLE MYELOMA
     Dates: start: 20040904
  5. VELCADE [Suspect]
     Indication: MULTIPLE MYELOMA
     Dates: start: 20041012
  6. CISPLATIN [Suspect]
     Indication: MULTIPLE MYELOMA
     Dates: start: 20040904
  7. CISPLATIN [Suspect]
     Indication: MULTIPLE MYELOMA
     Dates: start: 20041012
  8. ADRIAMYCIN PFS [Suspect]
     Indication: MULTIPLE MYELOMA
     Dates: start: 20040904
  9. ADRIAMYCIN PFS [Suspect]
     Indication: MULTIPLE MYELOMA
     Dates: start: 20041012
  10. CYCLOPHOSPHAMIDE [Suspect]
     Indication: MULTIPLE MYELOMA
     Dates: start: 20040904
  11. CYCLOPHOSPHAMIDE [Suspect]
     Indication: MULTIPLE MYELOMA
     Dates: start: 20041012
  12. ETOPOSIDE [Suspect]
     Indication: MULTIPLE MYELOMA
     Dates: start: 20040904
  13. ETOPOSIDE [Suspect]
     Indication: MULTIPLE MYELOMA
     Dates: start: 20041012
  14. MELPHALAN (MELPHALAN) [Suspect]
     Indication: MULTIPLE MYELOMA
     Dosage: 368 MG, DAILY, INTRAVENOUS
     Route: 042
     Dates: start: 20041123, end: 20041123
  15. ARANESP [Concomitant]
  16. NIFEREX (POLYSACCHARIDE-IRON COMPLEX) [Concomitant]
  17. AREDIA [Concomitant]
  18. ACYCLOVIR [Concomitant]
  19. VANCOMYCIN [Concomitant]
  20. WELLBUTRIN [Concomitant]
  21. LEXAPRO [Concomitant]
  22. DIFLUCAN [Concomitant]
  23. FLUTAMIDE [Concomitant]
  24. DIOVAN [Concomitant]
  25. FOLATE (FOLIC ACID) [Concomitant]
  26. CALCIUM (CALCIUM) [Concomitant]
  27. ZANTAC [Concomitant]
  28. TRICOR [Concomitant]
  29. PEPCID [Concomitant]
  30. AMBIEN [Concomitant]
  31. DARVON [Concomitant]
  32. ATIVAN [Concomitant]
  33. IMODIUM [Concomitant]
  34. COLACE (DOCUSATE SODIUM) [Concomitant]

REACTIONS (2)
  - DEEP VEIN THROMBOSIS [None]
  - FATIGUE [None]
